FAERS Safety Report 8605518-3 (Version None)
Quarter: 2012Q3

REPORT INFORMATION
  Report Type: 
  Country: None (occurrence: None)
  Receive Date: 20120820
  Receipt Date: 20120810
  Transmission Date: 20120928
  Serious: Yes (Hospitalization)
  Sender: FDA-Public Use
  Company Number: AU-EISAI INC-E3810-05800-SPO-AU

PATIENT
  Age: 24 Year
  Sex: Male
  Weight: 120 kg

DRUGS (3)
  1. CLOZAPINE [Suspect]
     Route: 065
  2. CLOZAPINE [Suspect]
     Dosage: REDUCED DOSE
     Route: 065
  3. RABEPRAZOLE SODIUM [Suspect]
     Route: 048

REACTIONS (2)
  - PANCREATITIS [None]
  - HYPERTRIGLYCERIDAEMIA [None]
